FAERS Safety Report 18070409 (Version 1)
Quarter: 2020Q3

REPORT INFORMATION
  Report Type: Spontaneous
  Country: US (occurrence: US)
  Receive Date: 20200727
  Receipt Date: 20200727
  Transmission Date: 20201103
  Serious: No
  Sender: FDA-Public Use
  Company Number: US-ALKEM LABORATORIES LIMITED-US-ALKEM-2020-01372

PATIENT
  Sex: Female
  Weight: 74 kg

DRUGS (4)
  1. REMODULIN [Suspect]
     Active Substance: TREPROSTINIL
     Indication: PULMONARY ARTERIAL HYPERTENSION
     Dosage: 2.5 MG/ML
     Route: 065
     Dates: start: 20200303
  2. ELIQUIS [Concomitant]
     Active Substance: APIXABAN
     Indication: PRODUCT USED FOR UNKNOWN INDICATION
     Dosage: UNKNOWN
     Route: 065
  3. MARINOL [Suspect]
     Active Substance: DRONABINOL
     Indication: PRODUCT USED FOR UNKNOWN INDICATION
     Dosage: UNKNOWN
     Route: 065
     Dates: end: 202003
  4. REMODULIN [Suspect]
     Active Substance: TREPROSTINIL
     Dosage: 0.22 UG/G
     Route: 041

REACTIONS (10)
  - Abdominal pain upper [Unknown]
  - Hypoaesthesia oral [Unknown]
  - Mobility decreased [Unknown]
  - Nausea [Unknown]
  - Feeling abnormal [Unknown]
  - Fluid retention [Unknown]
  - Headache [Unknown]
  - Diarrhoea [Unknown]
  - Hypotension [Unknown]
  - Malaise [Unknown]
